FAERS Safety Report 8841707 (Version 1)
Quarter: 2012Q4

REPORT INFORMATION
  Report Type: Spontaneous
  Country: US (occurrence: None)
  Receive Date: 20121011
  Receipt Date: 20121011
  Transmission Date: 20130627
  Serious: Yes (Hospitalization)
  Sender: FDA-Public Use
  Company Number: 001361798A

PATIENT
  Age: 52 Year
  Sex: Female

DRUGS (16)
  1. PROACTIV RENEWING CLEANSER [Suspect]
     Indication: ACNE
     Dates: start: 20111127, end: 20111215
  2. PROACTIV REPAIRING TREATMENT [Suspect]
     Indication: ACNE
     Dates: start: 20111127, end: 20111215
  3. PROACTIV REFINING MASK [Suspect]
     Indication: ACNE
     Dates: start: 20111127, end: 20111215
  4. PROACTIV [Suspect]
     Indication: ACNE
     Dates: start: 20111127, end: 20111215
  5. METOPROLOL [Concomitant]
  6. MAXIDE [Concomitant]
  7. GABAPENTIN [Concomitant]
  8. ONDANSETRON [Concomitant]
  9. OMEPRAZOLE [Concomitant]
  10. MORPHINE [Concomitant]
  11. INSULIN [Concomitant]
  12. DOCUSATE [Concomitant]
  13. CYCLOBENZAPRINE [Concomitant]
  14. MAGNESIUM [Concomitant]
  15. ASPIRIN [Concomitant]
  16. CALCITROL [Concomitant]

REACTIONS (3)
  - Pruritus [None]
  - Blister [None]
  - Immune system disorder [None]
